FAERS Safety Report 4448380-5 (Version None)
Quarter: 2004Q3

REPORT INFORMATION
  Report Type: 
  Country: None (occurrence: None)
  Receive Date: 20040910
  Receipt Date: 20040910
  Transmission Date: 20050211
  Serious: Yes (Hospitalization)
  Sender: FDA-Public Use
  Company Number: None

PATIENT
  Age: 62 Year
  Sex: Female
  Weight: 57.1532 kg

DRUGS (1)
  1. CISPLATIN [Suspect]
     Indication: NASAL SINUS CANCER
     Dosage: 165 MG IV
     Route: 042
     Dates: start: 20040823

REACTIONS (5)
  - ABDOMINAL PAIN [None]
  - BLOOD SODIUM DECREASED [None]
  - DEHYDRATION [None]
  - NAUSEA [None]
  - VOMITING [None]
